FAERS Safety Report 6490625-4 (Version None)
Quarter: 2009Q4

REPORT INFORMATION
  Report Type: 
  Country: None (occurrence: None)
  Receive Date: 20091211
  Receipt Date: 20091203
  Transmission Date: 20100525
  Serious: Yes (Other)
  Sender: FDA-Public Use
  Company Number: A0833182A

PATIENT
  Age: 56 Year
  Sex: Female

DRUGS (1)
  1. BUPROPION HYDROCHLORIDE [Suspect]
     Indication: DEPRESSION
     Dosage: 150MG TWICE PER DAY
     Route: 048

REACTIONS (4)
  - EMOTIONAL DISTRESS [None]
  - IMPATIENCE [None]
  - SCREAMING [None]
  - SUICIDAL IDEATION [None]
